FAERS Safety Report 21797006 (Version 3)
Quarter: 2023Q2

REPORT INFORMATION
  Report Type: Report from Study
  Country: BR (occurrence: BR)
  Receive Date: 20221230
  Receipt Date: 20230616
  Transmission Date: 20230721
  Serious: Yes (Hospitalization, Other)
  Sender: FDA-Public Use
  Company Number: BR-CELLTRION INC.-2022BR021839

PATIENT

DRUGS (9)
  1. INFLIXIMAB [Suspect]
     Active Substance: INFLIXIMAB
     Indication: Colitis ulcerative
     Dosage: 300 MG/: WEEK 0 300MG; WEEK 2 300MG; AND WEEK 6 MORE 3000MG; AFTER THIS PERIOD 1 AMPOULE EVERY TWO M
     Route: 042
     Dates: start: 20221214, end: 20230419
  2. INFLIXIMAB [Suspect]
     Active Substance: INFLIXIMAB
     Dosage: WEEK 6 WAS 300 MG (3 AMPOULES OF 100 MG EACH)
  3. LOSARTAN [Concomitant]
     Active Substance: LOSARTAN
     Indication: Hypertension
     Dosage: 50 MG, 1 PILL PER DAY
     Route: 048
  4. ALENDRONATE SODIUM [Concomitant]
     Active Substance: ALENDRONATE SODIUM
     Indication: Osteoporosis
     Dosage: 70 MG, 1 PILL PER WEEK
     Route: 048
  5. LEVOTHYROXINE SODIUM [Concomitant]
     Active Substance: LEVOTHYROXINE SODIUM
     Indication: Osteoporosis
     Dosage: 25 MG, 1 PILL PER DAY
     Route: 048
  6. CALCIUM CARBONATE\VITAMIN D [Concomitant]
     Active Substance: CALCIUM CARBONATE\VITAMIN D
     Indication: Osteoporosis
     Dosage: 2 PILLS PER DAY
     Route: 048
  7. PREDNISONE [Concomitant]
     Active Substance: PREDNISONE
     Indication: Colitis
     Dosage: 20 MG, 2 PILLS PER DAY
     Route: 048
  8. AZATHIOPRINE [Concomitant]
     Active Substance: AZATHIOPRINE
     Indication: Colitis
     Dosage: 50 MG, 1 PILL PER DAY
     Route: 048
     Dates: start: 20221214
  9. IRON POLYMALTOSE [Concomitant]
     Active Substance: IRON POLYMALTOSE
     Indication: Anaemia
     Dosage: 2 AMPOULES PER WEEK
     Route: 042

REACTIONS (3)
  - Colitis ulcerative [Recovering/Resolving]
  - Colitis ulcerative [Unknown]
  - Overdose [Unknown]

NARRATIVE: CASE EVENT DATE: 20220101
